FAERS Safety Report 7224412-6 (Version None)
Quarter: 2011Q1

REPORT INFORMATION
  Report Type: 
  Country: None (occurrence: None)
  Receive Date: 20110113
  Receipt Date: 20110106
  Transmission Date: 20110831
  Serious: Yes (Hospitalization)
  Sender: FDA-Public Use
  Company Number: FR-JNJFOC-20110101060

PATIENT
  Age: 72 Year
  Sex: Male

DRUGS (4)
  1. AXEPIM [Suspect]
     Route: 042
  2. AXEPIM [Suspect]
     Indication: PRODUCT USED FOR UNKNOWN INDICATION
     Route: 042
  3. TAVANIC [Suspect]
     Route: 048
  4. TAVANIC [Suspect]
     Indication: ILL-DEFINED DISORDER
     Route: 048

REACTIONS (4)
  - TREMOR [None]
  - MULTIPLE DRUG OVERDOSE [None]
  - VERTIGO [None]
  - RENAL FAILURE ACUTE [None]
